FAERS Safety Report 22953845 (Version 3)
Quarter: 2024Q4

REPORT INFORMATION
  Report Type: Spontaneous
  Country: US (occurrence: US)
  Receive Date: 20230918
  Receipt Date: 20241223
  Transmission Date: 20250114
  Serious: Yes (Hospitalization, Other)
  Sender: PFIZER
  Company Number: US-PFIZER INC-PV202300154515

PATIENT
  Age: 49 Year
  Sex: Female
  Weight: 76.3 kg

DRUGS (2)
  1. DEPO-PROVERA [Suspect]
     Active Substance: MEDROXYPROGESTERONE ACETATE
     Indication: Contraception
     Dosage: UNK
     Route: 030
     Dates: start: 1995, end: 2021
  2. MEDROXYPROGESTERONE ACETATE [Suspect]
     Active Substance: MEDROXYPROGESTERONE ACETATE
     Indication: Contraception
     Dosage: UNK
     Dates: start: 1995

REACTIONS (8)
  - Meningioma [Unknown]
  - Rib fracture [Unknown]
  - Loss of consciousness [Unknown]
  - Blindness unilateral [Not Recovered/Not Resolved]
  - Osteoporosis [Unknown]
  - Osteopenia [Unknown]
  - Nervous system disorder [Not Recovered/Not Resolved]
  - Scar [Not Recovered/Not Resolved]

NARRATIVE: CASE EVENT DATE: 20201101
